FAERS Safety Report 16775016 (Version 1)
Quarter: 2019Q3

REPORT INFORMATION
  Report Type: Report from Study
  Country: US (occurrence: US)
  Receive Date: 20190905
  Receipt Date: 20190905
  Transmission Date: 20191005
  Serious: Yes (Hospitalization)
  Sender: FDA-Public Use
  Company Number: US-AGIOS-1908US01365

PATIENT

DRUGS (2)
  1. TIBSOVO [Suspect]
     Active Substance: IVOSIDENIB
     Indication: MYELODYSPLASTIC SYNDROME TRANSFORMATION
     Dosage: 500 MILLIGRAM, QD
     Route: 048
     Dates: start: 20190703
  2. TIBSOVO [Suspect]
     Active Substance: IVOSIDENIB
     Indication: HAEMATOLOGICAL MALIGNANCY

REACTIONS (4)
  - Oedema peripheral [Unknown]
  - C-reactive protein increased [Unknown]
  - Upper respiratory tract infection [Unknown]
  - Off label use [Unknown]

NARRATIVE: CASE EVENT DATE: 20190703
